FAERS Safety Report 5023349-0 (Version None)
Quarter: 2006Q2

REPORT INFORMATION
  Report Type: 
  Country: None (occurrence: None)
  Receive Date: 20060612
  Receipt Date: 20060531
  Transmission Date: 20061013
  Serious: Yes (Hospitalization)
  Sender: FDA-Public Use
  Company Number: 2006AP02430

PATIENT
  Age: 19442 Day
  Sex: Female

DRUGS (2)
  1. LOSEC [Suspect]
     Indication: OESOPHAGEAL DISORDER
     Route: 048
     Dates: start: 20041115
  2. REMIFEMIN [Suspect]
     Indication: MENOPAUSAL SYMPTOMS
     Route: 048

REACTIONS (8)
  - C-REACTIVE PROTEIN INCREASED [None]
  - EOSINOPHILIA [None]
  - HYPERHIDROSIS [None]
  - LETHARGY [None]
  - MALAISE [None]
  - PYREXIA [None]
  - RED BLOOD CELL SEDIMENTATION RATE INCREASED [None]
  - WEIGHT DECREASED [None]
